FAERS Safety Report 8022960-2 (Version None)
Quarter: 2012Q1

REPORT INFORMATION
  Report Type: 
  Country: None (occurrence: None)
  Receive Date: 20120104
  Receipt Date: 20120103
  Transmission Date: 20120608
  Serious: No
  Sender: FDA-Public Use
  Company Number: US-BAYER-2012-000647

PATIENT
  Age: 53 Year
  Sex: Female

DRUGS (3)
  1. ADDERALL 5 [Concomitant]
  2. ALEVE (CAPLET) [Suspect]
     Indication: PRODUCT USED FOR UNKNOWN INDICATION
  3. MULTI-VITAMINS [Concomitant]
     Dosage: UNK UNK, PRN

REACTIONS (1)
  - HYPERSENSITIVITY [None]
